FAERS Safety Report 15285683 (Version 3)
Quarter: 2019Q1

REPORT INFORMATION
  Report Type: Spontaneous
  Country: DE (occurrence: DE)
  Receive Date: 20180816
  Receipt Date: 20190308
  Transmission Date: 20190417
  Serious: Yes (Death, Life-Threatening, Hospitalization)
  Sender: FDA-Public Use
  Company Number: PHHY2013DE176446

PATIENT
  Age: 70 Year
  Sex: Female
  Weight: 60 kg

DRUGS (19)
  1. BEVACIZUMAB. [Suspect]
     Active Substance: BEVACIZUMAB
     Dosage: 810 MG/KG, UNK
     Route: 042
     Dates: start: 20130918, end: 20130918
  2. AVASTIN [Suspect]
     Active Substance: BEVACIZUMAB
     Indication: OVARIAN CANCER
     Dosage: 1 OT, Q3W (3 WEEK)
     Route: 042
  3. FELODIPIN [Concomitant]
     Active Substance: FELODIPINE
     Indication: PRODUCT USED FOR UNKNOWN INDICATION
     Dosage: 5 MG, UNK
     Route: 048
  4. METOPROLOL. [Concomitant]
     Active Substance: METOPROLOL
     Indication: HYPERTENSION
     Dosage: 47.5 MG, UNK
     Route: 048
  5. CARBOPLATIN. [Suspect]
     Active Substance: CARBOPLATIN
     Indication: OVARIAN CANCER
     Dosage: 425 MG, UNK
     Route: 042
  6. METRONIDAZOLE. [Suspect]
     Active Substance: METRONIDAZOLE
     Indication: PRODUCT USED FOR UNKNOWN INDICATION
     Dosage: UNK
     Route: 065
  7. AVASTIN [Suspect]
     Active Substance: BEVACIZUMAB
     Dosage: 810 MG, Q3W
     Route: 042
     Dates: start: 20130918, end: 20130918
  8. PACLITAXEL. [Suspect]
     Active Substance: PACLITAXEL
     Indication: OVARIAN CANCER
     Dosage: 175 MG/M2, Q3W (275 MG-278MG)
     Route: 042
  9. PACLITAXEL. [Suspect]
     Active Substance: PACLITAXEL
     Dosage: 175 MG/M2, Q3W (275 MG-278MG)
     Route: 042
     Dates: start: 20130807, end: 20130807
  10. PACLITAXEL. [Suspect]
     Active Substance: PACLITAXEL
     Dosage: 175 MG/M2, Q3W (3 WEEK)
     Route: 042
     Dates: start: 20130918, end: 20130918
  11. BEVACIZUMAB. [Suspect]
     Active Substance: BEVACIZUMAB
     Indication: OVARIAN CANCER
     Dosage: 1 OT, Q3W
     Route: 042
  12. ROCEPHIN [Suspect]
     Active Substance: CEFTRIAXONE SODIUM
     Indication: PRODUCT USED FOR UNKNOWN INDICATION
     Dosage: UNK
     Route: 065
  13. CARBOPLATIN. [Suspect]
     Active Substance: CARBOPLATIN
     Dosage: 460 MG, UNK
     Route: 042
  14. PACLITAXEL. [Suspect]
     Active Substance: PACLITAXEL
     Dosage: 278 MG, UNK (DAILY DOSE: 278 MG MILLIGRAM(S) EVERY 21 DAY)
     Route: 042
     Dates: start: 20130807, end: 20130807
  15. CARBOPLATIN. [Suspect]
     Active Substance: CARBOPLATIN
     Dosage: 465 MG, UNK
     Route: 042
     Dates: start: 20130807, end: 20130807
  16. AVASTIN [Suspect]
     Active Substance: BEVACIZUMAB
     Dosage: 837 MG, Q3W
     Route: 042
     Dates: start: 20130828, end: 20130828
  17. AVASTIN [Suspect]
     Active Substance: BEVACIZUMAB
     Dosage: 15 MG/M2, EVERY 21 DAYS
     Route: 042
  18. PANTOPRAZOL [Concomitant]
     Active Substance: PANTOPRAZOLE SODIUM
     Indication: PRODUCT USED FOR UNKNOWN INDICATION
     Dosage: 40 MG, UNK
     Route: 048
  19. BEVACIZUMAB. [Suspect]
     Active Substance: BEVACIZUMAB
     Dosage: 837 MG, Q3W
     Route: 042
     Dates: start: 20130828, end: 20130828

REACTIONS (9)
  - Tachycardia [Recovered/Resolved]
  - Acute kidney injury [Fatal]
  - General physical health deterioration [Not Recovered/Not Resolved]
  - Tremor [Not Recovered/Not Resolved]
  - Urosepsis [Fatal]
  - Anaemia [Recovered/Resolved]
  - Fatigue [Not Recovered/Not Resolved]
  - Haemoglobin decreased [Recovered/Resolved]
  - Multiple organ dysfunction syndrome [Fatal]

NARRATIVE: CASE EVENT DATE: 20130626
